FAERS Safety Report 13296188 (Version 1)
Quarter: 2017Q1

REPORT INFORMATION
  Report Type: Spontaneous
  Country: FR (occurrence: FR)
  Receive Date: 20170304
  Receipt Date: 20170304
  Transmission Date: 20170428
  Serious: Yes (Congenital Anomaly, Other)
  Sender: FDA-Public Use
  Company Number: FR-ACCORD-048751

PATIENT
  Sex: Male

DRUGS (4)
  1. ISRADIPINE. [Concomitant]
     Active Substance: ISRADIPINE
     Route: 064
     Dates: start: 2008
  2. AZATHIOPRINE. [Concomitant]
     Active Substance: AZATHIOPRINE
     Route: 064
     Dates: start: 2008
  3. TACROLIMUS. [Suspect]
     Active Substance: TACROLIMUS
     Indication: RENAL TRANSPLANT
     Route: 064
     Dates: start: 2008
  4. ERYTHROPOIETIN HUMAN [Concomitant]
     Route: 064
     Dates: start: 2008

REACTIONS (3)
  - Chylothorax [Unknown]
  - Foetal exposure during pregnancy [Unknown]
  - Foetal growth restriction [Unknown]
